FAERS Safety Report 19719258 (Version 3)
Quarter: 2021Q3

REPORT INFORMATION
  Report Type: Spontaneous
  Country: US (occurrence: US)
  Receive Date: 20210819
  Receipt Date: 20210919
  Transmission Date: 20211014
  Serious: No
  Sender: FDA-Public Use
  Company Number: US-SA-2021SA274022

PATIENT
  Age: 82 Year
  Sex: Female

DRUGS (1)
  1. DUPIXENT [Suspect]
     Active Substance: DUPILUMAB
     Indication: DERMATITIS ATOPIC
     Dosage: 300 MG, QOW
     Route: 058

REACTIONS (9)
  - Urinary tract infection [Not Recovered/Not Resolved]
  - Rash [Unknown]
  - Injection site warmth [Not Recovered/Not Resolved]
  - Skin irritation [Not Recovered/Not Resolved]
  - Sensitive skin [Unknown]
  - Dry skin [Unknown]
  - Herpes zoster [Unknown]
  - Injection site pain [Not Recovered/Not Resolved]
  - Injection site erythema [Not Recovered/Not Resolved]
